FAERS Safety Report 5157036-5 (Version None)
Quarter: 2006Q4

REPORT INFORMATION
  Report Type: 
  Country: None (occurrence: None)
  Receive Date: 20061127
  Receipt Date: 20061114
  Transmission Date: 20070319
  Serious: Yes (Hospitalization)
  Sender: FDA-Public Use
  Company Number: FR-JNJFOC-20061103261

PATIENT
  Sex: Female

DRUGS (4)
  1. RISPERDAL [Suspect]
     Indication: DRUG EXPOSURE DURING PREGNANCY
  2. EFFEXOR [Concomitant]
  3. TRANXENE [Concomitant]
  4. BROMOCRIPTINE MESYLATE [Concomitant]

REACTIONS (9)
  - CAESAREAN SECTION [None]
  - DRUG EXPOSURE DURING PREGNANCY [None]
  - DRUG WITHDRAWAL SYNDROME [None]
  - DRUG WITHDRAWAL SYNDROME NEONATAL [None]
  - FEEDING DISORDER NEONATAL [None]
  - FOETAL DISTRESS SYNDROME [None]
  - HAEMANGIOMA [None]
  - NEONATAL DISORDER [None]
  - POOR SUCKING REFLEX [None]
